FAERS Safety Report 9329992 (Version 1)
Quarter: 2013Q2

REPORT INFORMATION
  Report Type: Spontaneous
  Country: IT (occurrence: IT)
  Receive Date: 20130604
  Receipt Date: 20130604
  Transmission Date: 20140414
  Serious: Yes (Hospitalization, Other)
  Sender: FDA-Public Use
  Company Number: IT-PFIZER INC-2013114120

PATIENT
  Age: 23 Month
  Sex: Male
  Weight: 13 kg

DRUGS (1)
  1. BENEFIX [Suspect]
     Indication: FACTOR IX DEFICIENCY
     Dosage: 2000 IU, (40 IU/KG),AS NEEDED
     Route: 042
     Dates: start: 20130319, end: 20130402

REACTIONS (2)
  - Anaphylactic shock [Recovering/Resolving]
  - Factor IX inhibition [Unknown]
